FAERS Safety Report 9503162 (Version 2)
Quarter: 2013Q3

REPORT INFORMATION
  Report Type: Spontaneous
  Country: US (occurrence: US)
  Receive Date: 20130906
  Receipt Date: 20130906
  Transmission Date: 20140515
  Serious: No
  Sender: FDA-Public Use
  Company Number: US-PFIZER INC-2013240426

PATIENT
  Age: 77 Year
  Sex: Male

DRUGS (20)
  1. LYRICA [Suspect]
     Indication: NEURALGIA
     Dosage: 50 MG IN THE MORNING AND 50 MG AT BEDTIME
     Dates: start: 201304
  2. LYRICA [Suspect]
     Indication: FIBROMYALGIA
     Dosage: 50 MG IN THE MORNING AND 100 MG AT BEDTIME
  3. PANTOPRAZOLE [Concomitant]
     Dosage: 40 MG, 1X/DAY
  4. FOLIC ACID [Concomitant]
     Dosage: UNK
  5. VITAMIN B12 [Concomitant]
     Dosage: 500 UG, 1X/DAY
  6. VITAMIN C [Concomitant]
     Dosage: 500 MG, 1X/DAY
  7. ZINC [Concomitant]
     Dosage: 50 MG, 1X/DAY
  8. FERROUS SULFATE [Concomitant]
     Dosage: 45 MG, 1X/DAY
  9. TRAZODONE [Concomitant]
     Dosage: 100 MG, 1X/DAY
  10. OXYCODONE [Concomitant]
     Dosage: 5/325 AT 10:00 PM
  11. LOSARTAN [Concomitant]
     Dosage: 50 MG, 1X/DAY
  12. ASA [Concomitant]
     Dosage: 81 MG, 1X/DAY
  13. LIDODERM [Concomitant]
     Dosage: 5 %, 1X/DAY
  14. VITAMIN D [Concomitant]
     Dosage: 50000 IU, 1X/DAY
  15. RANITIDINE [Suspect]
     Dosage: UNK
  16. PROCRIT [Concomitant]
     Dosage: 40000 IU, UNK
  17. GAVISCON [Concomitant]
  18. SILDENAFIL [Concomitant]
  19. ALBUTEROL [Concomitant]
     Indication: DYSPNOEA
  20. NYSTATIN [Concomitant]
     Dosage: (100,00U/ML), TID

REACTIONS (2)
  - Off label use [Unknown]
  - Therapeutic response unexpected [Unknown]
